FAERS Safety Report 4337589-7 (Version None)
Quarter: 2004Q2

REPORT INFORMATION
  Report Type: 
  Country: None (occurrence: None)
  Receive Date: 20040413
  Receipt Date: 20030506
  Transmission Date: 20050107
  Serious: No
  Sender: FDA-Public Use
  Company Number: US-GLAXOSMITHKLINE-A0407361A

PATIENT
  Age: 9 Year
  Sex: Male

DRUGS (1)
  1. DEXEDRINE [Suspect]
     Dosage: 10MG PER DAY
     Route: 048

REACTIONS (3)
  - HALITOSIS [None]
  - IRRITABILITY [None]
  - MOOD ALTERED [None]
